FAERS Safety Report 8250025-3 (Version None)
Quarter: 2012Q2

REPORT INFORMATION
  Report Type: 
  Country: None (occurrence: None)
  Receive Date: 20120402
  Receipt Date: 20120323
  Transmission Date: 20120825
  Serious: Yes (Death, Hospitalization, Other)
  Sender: FDA-Public Use
  Company Number: CO-ELI_LILLY_AND_COMPANY-CO201203007574

PATIENT
  Age: 76 Year
  Sex: Female

DRUGS (6)
  1. FORTEO [Suspect]
     Indication: OSTEOPOROSIS
     Dosage: 20 UG, QD
     Route: 058
     Dates: start: 20100101
  2. ACETAMINOPHEN [Concomitant]
  3. LEVOTHYROXINE SODIUM [Concomitant]
  4. LOVASTATIN [Concomitant]
  5. TRAMADOL HCL [Concomitant]
  6. LOSARTAN POTASSIUM [Concomitant]

REACTIONS (3)
  - LUNG CANCER METASTATIC [None]
  - THORACIC OPERATION [None]
  - HOSPITALISATION [None]
